FAERS Safety Report 19872345 (Version 1)
Quarter: 2021Q3

REPORT INFORMATION
  Report Type: Spontaneous
  Country: US (occurrence: US)
  Receive Date: 20210923
  Receipt Date: 20210923
  Transmission Date: 20211014
  Serious: Yes (Hospitalization)
  Sender: FDA-Public Use
  Company Number: None

PATIENT
  Age: 77 Year
  Sex: Male
  Weight: 123.3 kg

DRUGS (14)
  1. ROSUVASTATIN. [Concomitant]
     Active Substance: ROSUVASTATIN
  2. BRILINTA [Concomitant]
     Active Substance: TICAGRELOR
  3. VITAMIN C [Concomitant]
     Active Substance: ASCORBIC ACID
  4. VITAMIN D [Concomitant]
     Active Substance: VITAMIN D NOS
  5. TYLENOL [Concomitant]
     Active Substance: ACETAMINOPHEN
  6. ALPHA LIPOIC ACID [Concomitant]
     Active Substance: .ALPHA.-LIPOIC ACID
  7. CLOPIDOGREL [Suspect]
     Active Substance: CLOPIDOGREL BISULFATE
     Indication: THROMBOSIS PROPHYLAXIS
     Dosage: ?          QUANTITY:1 TABLET(S);?
     Route: 048
     Dates: start: 20210728, end: 20210910
  8. COENZYME Q10 [Concomitant]
     Active Substance: DIETARY SUPPLEMENT\UBIDECARENONE
  9. ASPIRIN. [Concomitant]
     Active Substance: ASPIRIN
  10. SHARP THOUGHT [Concomitant]
  11. LOSARTAN. [Concomitant]
     Active Substance: LOSARTAN
  12. FISH OIL [Concomitant]
     Active Substance: FISH OIL
  13. VITAMIN SUPPLEMENT [Concomitant]
     Active Substance: VITAMINS
  14. CLARITIN [Concomitant]
     Active Substance: LORATADINE

REACTIONS (8)
  - Nephrolithiasis [None]
  - Skin burning sensation [None]
  - Rash pruritic [None]
  - Chills [None]
  - Eyelid rash [None]
  - Dermatitis allergic [None]
  - Pneumonia [None]
  - Rash [None]

NARRATIVE: CASE EVENT DATE: 20210902
